FAERS Safety Report 17928540 (Version 1)
Quarter: 2020Q2

REPORT INFORMATION
  Report Type: Spontaneous
  Country: US (occurrence: US)
  Receive Date: 20200622
  Receipt Date: 20200622
  Transmission Date: 20200714
  Serious: No
  Sender: FDA-Public Use
  Company Number: None

PATIENT
  Age: 50 Year
  Sex: Female
  Weight: 81 kg

DRUGS (3)
  1. PEROXIE CARE TARTAR CONTROL HEALTHY GUMS BAKING SODA AND PEROXIDE [Suspect]
     Active Substance: SODIUM FLUORIDE
     Indication: DENTAL DISORDER PROPHYLAXIS
     Dates: start: 20200511, end: 20200622
  2. GARDEN OF LIFE WOMENS^S 40+  MULTIVITAMIN [Concomitant]
  3. SOLGAR GENTLE IRON 25 MG [Concomitant]

REACTIONS (9)
  - Erythema [None]
  - Skin exfoliation [None]
  - Chapped lips [None]
  - Skin disorder [None]
  - Stomatitis [None]
  - Lip dry [None]
  - Oral pain [None]
  - Cheilitis [None]
  - Urticaria [None]

NARRATIVE: CASE EVENT DATE: 20200611
